FAERS Safety Report 4897942-X (Version None)
Quarter: 2006Q1

REPORT INFORMATION
  Report Type: 
  Country: None (occurrence: None)
  Receive Date: 20060130
  Receipt Date: 20060117
  Transmission Date: 20060701
  Serious: Yes (Death)
  Sender: FDA-Public Use
  Company Number: B0407743A

PATIENT
  Age: 21 Month
  Sex: Female

DRUGS (3)
  1. EPIVIR [Suspect]
     Indication: HIV INFECTION
     Dosage: UNKNOWN
     Route: 065
  2. STAVUDINE [Suspect]
     Indication: HIV INFECTION
     Dosage: UNKNOWN
     Route: 065
  3. LOPINAVIR + RITONAVIR (FORMULATION UNKNOWN) (LOPINAVIR + RITONAVIR) [Suspect]
     Indication: HIV INFECTION
     Dosage: UNKNOWN
     Route: 065

REACTIONS (20)
  - ABASIA [None]
  - AREFLEXIA [None]
  - BODY HEIGHT BELOW NORMAL [None]
  - CARDIAC DISORDER [None]
  - CARDIAC FAILURE [None]
  - CARDIOMYOPATHY [None]
  - CEREBELLAR SYNDROME [None]
  - DISSEMINATED CYTOMEGALOVIRAL INFECTION [None]
  - EOSINOPHILIA [None]
  - EYE MOVEMENT DISORDER [None]
  - FEEDING DISORDER OF INFANCY OR EARLY CHILDHOOD [None]
  - HEPATOSPLENOMEGALY [None]
  - IMMUNE RECONSTITUTION SYNDROME [None]
  - INSOMNIA [None]
  - IRRITABILITY [None]
  - MUTISM [None]
  - NEPHRITIS [None]
  - OPSOCLONUS MYOCLONUS [None]
  - RENAL FAILURE [None]
  - WEIGHT BELOW NORMAL [None]
